FAERS Safety Report 7075236-4 (Version None)
Quarter: 2010Q4

REPORT INFORMATION
  Report Type: 
  Country: None (occurrence: None)
  Receive Date: 20101030
  Receipt Date: 20100708
  Transmission Date: 20110411
  Serious: No
  Sender: FDA-Public Use
  Company Number: US-WYE-H16046710

PATIENT
  Sex: Female

DRUGS (2)
  1. TYGACIL [Suspect]
     Indication: ENCEPHALITIS
     Dosage: 100.00MG DAILY
  2. TYGACIL [Suspect]
     Indication: PNEUMONIA MYCOPLASMAL

REACTIONS (3)
  - EYE IRRITATION [None]
  - NAUSEA [None]
  - VOMITING [None]
